FAERS Safety Report 8849392 (Version 2)
Quarter: 2014Q2

REPORT INFORMATION
  Report Type: Spontaneous
  Country: AU (occurrence: AU)
  Receive Date: 20121017
  Receipt Date: 20131018
  Transmission Date: 20141212
  Serious: Yes (Other)
  Sender: FDA-Public Use
  Company Number: AU-PFIZER INC-2012253890

PATIENT
  Age: 76 Year
  Sex: Female

DRUGS (1)
  1. SOLU-CORTEF [Suspect]
     Indication: EXOSTOSIS
     Dosage: UNK

REACTIONS (8)
  - Injection site abscess [Unknown]
  - Tendon pain [Unknown]
  - Tendonitis [Unknown]
  - Pain in extremity [Unknown]
  - Arthralgia [Unknown]
  - Walking aid user [Unknown]
  - Oedema peripheral [Unknown]
  - Gait disturbance [Unknown]
